FAERS Safety Report 9524219 (Version 1)
Quarter: 2013Q3

REPORT INFORMATION
  Report Type: Spontaneous
  Country: US (occurrence: None)
  Receive Date: 20130912
  Receipt Date: 20130912
  Transmission Date: 20140515
  Serious: Yes (Disabling, Other)
  Sender: FDA-Public Use
  Company Number: None

PATIENT
  Age: 47 Year
  Sex: Female
  Weight: 67.13 kg

DRUGS (3)
  1. DYSPORT [Suspect]
     Indication: TORTICOLLIS
     Dates: start: 20130312, end: 20130618
  2. VITAMIN B-12 [Concomitant]
  3. MULTI VITAMIN [Concomitant]

REACTIONS (6)
  - Dizziness [None]
  - Middle ear effusion [None]
  - Vision blurred [None]
  - Feeling abnormal [None]
  - Uterine disorder [None]
  - Muscular weakness [None]
